FAERS Safety Report 4596061-X (Version None)
Quarter: 2005Q1

REPORT INFORMATION
  Report Type: 
  Country: None (occurrence: None)
  Receive Date: 20050225
  Receipt Date: 20050210
  Transmission Date: 20050727
  Serious: No
  Sender: FDA-Public Use
  Company Number: 2005UW02077

PATIENT
  Age: 73 Year
  Sex: Male

DRUGS (2)
  1. CRESTOR [Suspect]
     Indication: HYPERCHOLESTEROLAEMIA
     Dosage: 10 MG DAILY PO
     Route: 048
     Dates: start: 20030101
  2. CYCLOSPORINE [Concomitant]

REACTIONS (3)
  - HYPOAESTHESIA [None]
  - LOSS OF CONSCIOUSNESS [None]
  - PARAESTHESIA [None]
